FAERS Safety Report 15833665 (Version 1)
Quarter: 2019Q1

REPORT INFORMATION
  Report Type: Spontaneous
  Country: PT (occurrence: PT)
  Receive Date: 20190116
  Receipt Date: 20190116
  Transmission Date: 20190417
  Serious: Yes (Life-Threatening, Hospitalization)
  Sender: FDA-Public Use
  Company Number: PT-JNJFOC-20190109901

PATIENT
  Age: 49 Year
  Sex: Male

DRUGS (3)
  1. CHLORPROMAZINE. [Suspect]
     Active Substance: CHLORPROMAZINE
     Indication: SCHIZOTYPAL PERSONALITY DISORDER
     Route: 065
  2. HALOPERIDOL. [Suspect]
     Active Substance: HALOPERIDOL
     Indication: SCHIZOTYPAL PERSONALITY DISORDER
     Route: 065
  3. QUETIAPINE FUMARATE. [Suspect]
     Active Substance: QUETIAPINE FUMARATE
     Indication: SCHIZOTYPAL PERSONALITY DISORDER
     Route: 048
     Dates: end: 20150718

REACTIONS (6)
  - Leukocytosis [Recovered/Resolved]
  - Insomnia [Recovered/Resolved]
  - Neuroleptic malignant syndrome [Recovered/Resolved]
  - Delirium [Recovered/Resolved]
  - Thrombocytopenia [Recovered/Resolved]
  - Slow speech [Recovered/Resolved]

NARRATIVE: CASE EVENT DATE: 20150717
